FAERS Safety Report 10968463 (Version 3)
Quarter: 2015Q2

REPORT INFORMATION
  Report Type: Report from Study
  Country: JP (occurrence: JP)
  Receive Date: 20150330
  Receipt Date: 20150508
  Transmission Date: 20150821
  Serious: Yes (Other)
  Sender: FDA-Public Use
  Company Number: PHJP2015JP004355

PATIENT
  Sex: Male

DRUGS (7)
  1. AMLODIPINE [Concomitant]
     Active Substance: AMLODIPINE BESYLATE
     Indication: HYPERTENSION
     Dosage: 5 MG, QD
     Route: 048
     Dates: start: 20140425
  2. ONON [Concomitant]
     Active Substance: PRANLUKAST
     Indication: DERMATITIS
     Dosage: 225 MG, BID
     Route: 048
     Dates: start: 20140523
  3. FULMETA [Concomitant]
     Active Substance: MOMETASONE
     Indication: DERMATITIS
     Dosage: 2-3 TIMES DAILY
     Route: 065
     Dates: start: 20140523
  4. NEOMALLERMIN TR [Concomitant]
     Indication: DERMATITIS
     Dosage: 5 MG, BID
     Route: 048
     Dates: start: 20140523
  5. TASIGNA [Suspect]
     Active Substance: NILOTINIB
     Indication: CHRONIC MYELOID LEUKAEMIA
     Dosage: UNK
     Route: 048
     Dates: start: 20131031, end: 20150320
  6. ALLELOCK [Concomitant]
     Active Substance: OLOPATADINE HYDROCHLORIDE
     Indication: DERMATITIS
     Dosage: 5 MG, BID
     Route: 048
     Dates: start: 20140523
  7. GASTER [Concomitant]
     Active Substance: FAMOTIDINE
     Indication: CHRONIC GASTRITIS
     Dosage: 10 MG, BID
     Route: 048
     Dates: start: 20141017

REACTIONS (1)
  - Acute hepatitis B [Not Recovered/Not Resolved]

NARRATIVE: CASE EVENT DATE: 20150319
